FAERS Safety Report 10237829 (Version 1)
Quarter: 2014Q2

REPORT INFORMATION
  Report Type: Report from Study
  Country: BE (occurrence: BE)
  Receive Date: 20140616
  Receipt Date: 20140616
  Transmission Date: 20141212
  Serious: Yes (Hospitalization)
  Sender: FDA-Public Use
  Company Number: BE-BIOGENIDEC-2014BI055251

PATIENT
  Age: 57 Year
  Sex: Male

DRUGS (9)
  1. TYSABRI [Suspect]
     Indication: RELAPSING-REMITTING MULTIPLE SCLEROSIS
     Route: 042
     Dates: start: 20120913, end: 20140424
  2. BACLOFEN [Concomitant]
     Indication: MUSCLE SPASTICITY
     Dates: start: 20120615
  3. PREGABALINE [Concomitant]
     Indication: NEURALGIA
     Dates: start: 20120914
  4. OXYBUTININE [Concomitant]
     Indication: NEUROGENIC BLADDER
     Dates: start: 20120615
  5. LISINOPRIL [Concomitant]
     Indication: HYPERTENSION
     Dates: start: 20120615
  6. B VITAMINESCOMPLEX (BENERVA) [Concomitant]
  7. VENLAFAXINE XL [Concomitant]
  8. BARNIDIPINE [Concomitant]
     Indication: HYPERTENSION
  9. ASAFLOW [Concomitant]
     Indication: CEREBROVASCULAR ACCIDENT PROPHYLAXIS
     Dates: start: 20140508

REACTIONS (1)
  - Central nervous system lesion [Recovered/Resolved]
